FAERS Safety Report 4489564-X (Version None)
Quarter: 2004Q4

REPORT INFORMATION
  Report Type: 
  Country: None (occurrence: None)
  Receive Date: 20041026
  Receipt Date: 20041014
  Transmission Date: 20050328
  Serious: Yes (Disabling, Other)
  Sender: FDA-Public Use
  Company Number: 2004237243JP

PATIENT
  Age: 87 Year
  Sex: Female

DRUGS (6)
  1. XALATAN [Suspect]
     Indication: GLAUCOMA
     Dosage: QD, OPHTHALMIC
     Route: 047
     Dates: start: 20031007, end: 20040920
  2. HYALURONATE SODIUM [Concomitant]
  3. METHYCOBAL (MECOBALAMIN) [Concomitant]
  4. NEO-MEDROL EYE-EAR [Concomitant]
  5. FLUMETHOLON (FLUOROMETHOLONE) [Concomitant]
  6. OFLOXACIN (OFOXACIN) [Concomitant]

REACTIONS (6)
  - CONJUNCTIVAL HYPERAEMIA [None]
  - CORNEAL NEOVASCULARISATION [None]
  - KERATITIS [None]
  - PEMPHIGOID [None]
  - SYMBLEPHARON [None]
  - VISUAL ACUITY REDUCED [None]
